FAERS Safety Report 20318246 (Version 3)
Quarter: 2022Q1

REPORT INFORMATION
  Report Type: Spontaneous
  Country: AU (occurrence: AU)
  Receive Date: 20220110
  Receipt Date: 20220307
  Transmission Date: 20220423
  Serious: Yes (Other)
  Sender: FDA-Public Use
  Company Number: AU-MYLANLABS-2022M1001163

PATIENT
  Sex: Male

DRUGS (12)
  1. CLOZARIL [Suspect]
     Active Substance: CLOZAPINE
     Indication: Schizophrenia
     Dosage: 225 MILLIGRAM
     Route: 048
     Dates: start: 20210512
  2. ZUCLOPENTHIXOL DECANOATE [Concomitant]
     Active Substance: ZUCLOPENTHIXOL DECANOATE
     Dosage: 350 MILLIGRAM, BIWEEKLY (350MG 2-WEEKLY)
     Route: 030
  3. ESOMEPRAZOLE [Concomitant]
     Active Substance: ESOMEPRAZOLE
     Dosage: 40 MILLIGRAM (PO 40MG NOCTE)
     Route: 048
  4. DOCUSATE [Concomitant]
     Active Substance: DOCUSATE
     Dosage: 240 MILLIGRAM ( PO 240MG MANE)
     Route: 048
  5. FLUDROCORTISONE [Concomitant]
     Active Substance: FLUDROCORTISONE
     Dosage: 200 MICROGRAM (PO 200MICROG MANE)
     Route: 048
  6. ATROPINE [Concomitant]
     Active Substance: ATROPINE
     Dosage: 2 DROP (1% DROPS SUBLING 2 DROPS NOCTE)
  7. FOLIC ACID [Concomitant]
     Active Substance: FOLIC ACID
     Dosage: 1 MILLIGRAM (PO 1MG MANE)
     Route: 048
  8. LORAZEPAM [Concomitant]
     Active Substance: LORAZEPAM
     Dosage: UNK
  9. MYLANTA [Concomitant]
     Active Substance: ALUMINUM HYDROXIDE\DIMETHICONE\MAGNESIUM HYDROXIDE
     Dosage: UNK
  10. NICOTINE [Concomitant]
     Active Substance: NICOTINE
     Dosage: UNK
  11. METHAMPHETAMINE [Concomitant]
     Active Substance: METHAMPHETAMINE
     Dosage: UNK
  12. METHYLPHENIDATE [Concomitant]
     Active Substance: METHYLPHENIDATE
     Dosage: UNK

REACTIONS (5)
  - Cardiac disorder [Unknown]
  - Syncope [Not Recovered/Not Resolved]
  - Blood folate decreased [Unknown]
  - Orthostatic hypotension [Recovering/Resolving]
  - Tachycardia [Not Recovered/Not Resolved]
